FAERS Safety Report 13638793 (Version 1)
Quarter: 2017Q2

REPORT INFORMATION
  Report Type: Spontaneous
  Country: CA (occurrence: CA)
  Receive Date: 20170609
  Receipt Date: 20170609
  Transmission Date: 20170830
  Serious: Yes (Other)
  Sender: FDA-Public Use
  Company Number: CA-ALLERGAN-1723539US

PATIENT
  Sex: Male
  Weight: 2.58 kg

DRUGS (16)
  1. ESCITALOPRAM OXALATE - BP [Suspect]
     Active Substance: ESCITALOPRAM OXALATE
     Indication: MATERNAL EXPOSURE TIMING UNSPECIFIED
     Dosage: 30 MG, QD
     Route: 064
     Dates: start: 2014, end: 2014
  2. ESCITALOPRAM OXALATE - BP [Suspect]
     Active Substance: ESCITALOPRAM OXALATE
     Dosage: 30 MG, QD
     Route: 063
     Dates: start: 2014, end: 2014
  3. CALCIUM [Suspect]
     Active Substance: CALCIUM
     Indication: MATERNAL EXPOSURE TIMING UNSPECIFIED
     Dosage: 1000 MG, QD
     Route: 064
     Dates: start: 2014, end: 2014
  4. CHOLECALCIFEROL [Suspect]
     Active Substance: CHOLECALCIFEROL
     Indication: MATERNAL EXPOSURE TIMING UNSPECIFIED
     Dosage: 1000 IU, QD
     Route: 064
     Dates: start: 2014, end: 2014
  5. SUBOXONE [Suspect]
     Active Substance: BUPRENORPHINE HYDROCHLORIDE\NALOXONE HYDROCHLORIDE
     Dosage: 10 MG, QD
     Route: 064
     Dates: start: 2014, end: 2014
  6. SUBOXONE [Suspect]
     Active Substance: BUPRENORPHINE HYDROCHLORIDE\NALOXONE HYDROCHLORIDE
     Dosage: 12 MG, QD
     Route: 063
     Dates: start: 2014
  7. NICOTINE. [Suspect]
     Active Substance: NICOTINE
     Indication: MATERNAL EXPOSURE TIMING UNSPECIFIED
     Dosage: 4 CIGARETTES
     Route: 064
     Dates: start: 2014, end: 2014
  8. NICOTINE. [Suspect]
     Active Substance: NICOTINE
     Dosage: 4 CIGARETTES
     Route: 063
     Dates: start: 2014, end: 2014
  9. FOLIC ACID. [Suspect]
     Active Substance: FOLIC ACID
     Indication: MATERNAL EXPOSURE TIMING UNSPECIFIED
     Dosage: 1000 ?G, QD
     Route: 064
     Dates: start: 2014, end: 2014
  10. CALCIUM [Suspect]
     Active Substance: CALCIUM
     Dosage: 1000 MG, QD
     Route: 063
     Dates: start: 2014, end: 2014
  11. CHOLECALCIFEROL [Suspect]
     Active Substance: CHOLECALCIFEROL
     Dosage: 1000 IU, QD
     Route: 063
     Dates: start: 2014, end: 2014
  12. SUBUTEX [Suspect]
     Active Substance: BUPRENORPHINE HYDROCHLORIDE
     Indication: MATERNAL EXPOSURE TIMING UNSPECIFIED
     Dosage: 12 MG, QD
     Route: 064
     Dates: start: 2014, end: 2014
  13. SUBUTEX [Suspect]
     Active Substance: BUPRENORPHINE HYDROCHLORIDE
     Dosage: 10 MG, QD
     Route: 064
     Dates: start: 2014, end: 2014
  14. PRENATAL MULTIPLE VITAMIN [Concomitant]
     Indication: MATERNAL EXPOSURE TIMING UNSPECIFIED
     Route: 065
  15. FOLIC ACID. [Suspect]
     Active Substance: FOLIC ACID
     Dosage: 1000 ?G, QD
     Route: 063
     Dates: start: 2014, end: 2014
  16. SUBOXONE [Suspect]
     Active Substance: BUPRENORPHINE HYDROCHLORIDE\NALOXONE HYDROCHLORIDE
     Indication: MATERNAL EXPOSURE TIMING UNSPECIFIED
     Dosage: 12 MG, QD
     Route: 064
     Dates: start: 2014

REACTIONS (13)
  - Jaundice neonatal [Recovered/Resolved]
  - Knee deformity [Recovered/Resolved]
  - Selective eating disorder [Unknown]
  - Talipes [Recovered/Resolved]
  - Exposure during breast feeding [Unknown]
  - Hyperbilirubinaemia [Unknown]
  - Hypoglycaemia neonatal [Recovered/Resolved]
  - Respiratory distress [Recovered/Resolved]
  - Agitation neonatal [Unknown]
  - Drug withdrawal syndrome neonatal [Recovered/Resolved]
  - Weight decrease neonatal [Unknown]
  - Exposure during pregnancy [Unknown]
  - Facial asymmetry [Unknown]

NARRATIVE: CASE EVENT DATE: 2014
